FAERS Safety Report 24796460 (Version 2)
Quarter: 2025Q4

REPORT INFORMATION
  Report Type: Report from Study
  Country: CA (occurrence: None)
  Receive Date: 20250101
  Receipt Date: 20251210
  Transmission Date: 20260119
  Serious: No
  Sender: UCB
  Company Number: CA-UCBSA-2024068262

PATIENT
  Age: 54 Year

DRUGS (3)
  1. CERTOLIZUMAB PEGOL [Suspect]
     Active Substance: CERTOLIZUMAB PEGOL
     Indication: Ankylosing spondylitis
     Dosage: 400 MILLIGRAM, EV 2 WEEKS(QOW)
  2. CERTOLIZUMAB PEGOL [Suspect]
     Active Substance: CERTOLIZUMAB PEGOL
     Dosage: 200 MILLIGRAM, EV 2 WEEKS(QOW)
  3. CERTOLIZUMAB PEGOL [Suspect]
     Active Substance: CERTOLIZUMAB PEGOL
     Dosage: 200 MILLIGRAM, EV 4 WEEKS

REACTIONS (3)
  - BASDAI score increased [Recovering/Resolving]
  - BASFI score increased [Unknown]
  - Inappropriate schedule of product administration [Unknown]
